FAERS Safety Report 15769236 (Version 1)
Quarter: 2018Q4

REPORT INFORMATION
  Report Type: Spontaneous
  Country: ES (occurrence: ES)
  Receive Date: 20181228
  Receipt Date: 20181228
  Transmission Date: 20190205
  Serious: Yes (Life-Threatening, Hospitalization)
  Sender: FDA-Public Use
  Company Number: ES-PROVELL PHARMACEUTICALS-2060647

PATIENT
  Age: 58 Year
  Sex: Female
  Weight: 46 kg

DRUGS (5)
  1. PROGEFFIK (100 MILLIGRAM) [Suspect]
     Active Substance: PROGESTERONE
     Route: 048
     Dates: start: 20110212
  2. ADIRO (100 MILLIGRAM) [Suspect]
     Active Substance: ASPIRIN
     Dates: start: 20110211
  3. HYDRAPRES (25 MILLIGRAM) [Suspect]
     Active Substance: HYDRALAZINE HYDROCHLORIDE
     Dates: start: 20110215
  4. EUTHYROX [Suspect]
     Active Substance: LEVOTHYROXINE SODIUM
     Indication: HYPOTHYROIDISM
     Dates: start: 20100701
  5. CLEXANE [Suspect]
     Active Substance: ENOXAPARIN SODIUM
     Dates: start: 20110215

REACTIONS (2)
  - Migraine [Recovered/Resolved with Sequelae]
  - Intracranial pressure increased [Recovered/Resolved with Sequelae]

NARRATIVE: CASE EVENT DATE: 20110215
